FAERS Safety Report 23628214 (Version 1)
Quarter: 2024Q1

REPORT INFORMATION
  Report Type: Spontaneous
  Country: US (occurrence: US)
  Receive Date: 20240313
  Receipt Date: 20240313
  Transmission Date: 20240410
  Serious: Yes (Other)
  Sender: FDA-Public Use
  Company Number: US-GILEAD-2024-0664523

PATIENT
  Sex: Male

DRUGS (1)
  1. VEMLIDY [Suspect]
     Active Substance: TENOFOVIR ALAFENAMIDE FUMARATE
     Indication: Product used for unknown indication
     Dosage: UNK
     Route: 065

REACTIONS (16)
  - Sepsis [Unknown]
  - Lactic acidosis [Unknown]
  - Coma [Unknown]
  - Suicidal ideation [Unknown]
  - Angioedema [Unknown]
  - Jaundice [Unknown]
  - Insomnia [Unknown]
  - Anxiety [Unknown]
  - Arthralgia [Unknown]
  - Abdominal distension [Unknown]
  - Blood cholesterol increased [Unknown]
  - Hostility [Unknown]
  - Stupor [Unknown]
  - Abscess [Unknown]
  - Aggression [Unknown]
  - Intellectual disability [Unknown]
